FAERS Safety Report 23534182 (Version 1)
Quarter: 2024Q1

REPORT INFORMATION
  Report Type: Spontaneous
  Country: US (occurrence: US)
  Receive Date: 20240216
  Receipt Date: 20240216
  Transmission Date: 20240409
  Serious: Yes (Hospitalization)
  Sender: FDA-Public Use
  Company Number: US-PRINSTON PHARMACEUTICAL INC.-2024PRN00062

PATIENT
  Age: 57 Year
  Sex: Female
  Weight: 63.503 kg

DRUGS (7)
  1. DULOXETINE [Suspect]
     Active Substance: DULOXETINE
     Indication: Neuralgia
     Dosage: 60 MG, 1X/DAY ALONG WITH 30 MG FOR A TOTAL OF 90 MG
     Dates: end: 202311
  2. DULOXETINE [Suspect]
     Active Substance: DULOXETINE
     Indication: Depression
     Dosage: 120 MG, 1X/DAY
     Dates: start: 202311
  3. DULOXETINE [Suspect]
     Active Substance: DULOXETINE
     Indication: Anxiety
  4. DULOXETINE [Suspect]
     Active Substance: DULOXETINE
     Indication: Neuralgia
     Dosage: 30 MG, 1X/DAY ALONG WITH 60 MG FOR A TOTAL OF 90 MG
     Dates: end: 202311
  5. DULOXETINE [Suspect]
     Active Substance: DULOXETINE
     Indication: Depression
  6. DULOXETINE [Suspect]
     Active Substance: DULOXETINE
     Indication: Anxiety
  7. UNSPECIFIED INGREDIENT [Concomitant]
     Active Substance: UNSPECIFIED INGREDIENT

REACTIONS (6)
  - Ileus paralytic [Unknown]
  - Pain [Not Recovered/Not Resolved]
  - Product residue present [Not Recovered/Not Resolved]
  - Eyelid disorder [Unknown]
  - Malabsorption [Not Recovered/Not Resolved]
  - Drug ineffective [Not Recovered/Not Resolved]

NARRATIVE: CASE EVENT DATE: 20231101
